FAERS Safety Report 9767922 (Version 1)
Quarter: 2013Q4

REPORT INFORMATION
  Report Type: Report from Study
  Country: BR (occurrence: BR)
  Receive Date: 20131217
  Receipt Date: 20131217
  Transmission Date: 20140711
  Serious: Yes (Hospitalization, Other)
  Sender: FDA-Public Use
  Company Number: PHHY2013BR147854

PATIENT
  Age: 90 Year
  Sex: Female
  Weight: 72 kg

DRUGS (3)
  1. ACLASTA [Suspect]
     Indication: OSTEOPOROSIS
     Dosage: 5 MG, UNK
     Route: 042
     Dates: start: 201301
  2. ARADOIS [Concomitant]
     Indication: HYPERTENSION
     Dosage: 2 TABLETS (50MG), DAILY
     Route: 048
     Dates: start: 2008
  3. TYLENOL [Concomitant]
     Indication: PAIN IN EXTREMITY
     Dosage: 1 TABLET (500 MG), DAILY PRN

REACTIONS (3)
  - Pneumonia [Recovered/Resolved]
  - Dyspnoea [Recovered/Resolved]
  - Lung disorder [Recovered/Resolved]
